FAERS Safety Report 18769799 (Version 8)
Quarter: 2021Q4

REPORT INFORMATION
  Report Type: Spontaneous
  Country: IN (occurrence: IN)
  Receive Date: 20210121
  Receipt Date: 20211105
  Transmission Date: 20220303
  Serious: Yes (Other)
  Sender: FDA-Public Use
  Company Number: IN-PFIZER INC-2020373184

PATIENT
  Age: 50 Year
  Sex: Male

DRUGS (4)
  1. CRIZOTINIB [Suspect]
     Active Substance: CRIZOTINIB
     Indication: Non-small cell lung cancer
     Dosage: 250 MG, 2X/DAY (TO BE TAKEN WITH OR WITHOUT FOOD)
     Route: 048
     Dates: start: 20191231, end: 202105
  2. DOMSTAL [DOMPERIDONE] [Concomitant]
     Indication: Nausea
     Dosage: 10 MG (1 SOS)
  3. DOMSTAL [DOMPERIDONE] [Concomitant]
     Indication: Vomiting
  4. ULTRACET [Concomitant]
     Active Substance: ACETAMINOPHEN\TRAMADOL HYDROCHLORIDE
     Indication: Pain
     Dosage: UNK (1 SOS)

REACTIONS (12)
  - Cerebral infarction [Unknown]
  - Cerebral ischaemia [Unknown]
  - Oedema peripheral [Unknown]
  - Neoplasm progression [Unknown]
  - Chest pain [Unknown]
  - Hyperhidrosis [Unknown]
  - Dizziness [Unknown]
  - Pleural effusion [Unknown]
  - Aortic valve thickening [Unknown]
  - COVID-19 [Recovering/Resolving]
  - Endocrine disorder [Unknown]
  - Atelectasis [Unknown]

NARRATIVE: CASE EVENT DATE: 20200118
